FAERS Safety Report 26170626 (Version 2)
Quarter: 2025Q4

REPORT INFORMATION
  Report Type: Report from Study
  Country: CA (occurrence: CA)
  Receive Date: 20251217
  Receipt Date: 20251228
  Transmission Date: 20260119
  Serious: Yes (Other)
  Sender: ABBVIE
  Company Number: CA-ABBVIE-6588298

PATIENT
  Age: 26 Year
  Sex: Male

DRUGS (1)
  1. HUMIRA [Suspect]
     Active Substance: ADALIMUMAB
     Indication: Crohn^s disease
     Route: 058
     Dates: end: 20210720

REACTIONS (5)
  - Stenosis [Unknown]
  - Abscess intestinal [Unknown]
  - Small intestinal obstruction [Unknown]
  - Fistula [Unknown]
  - Obstruction gastric [Unknown]

NARRATIVE: CASE EVENT DATE: 20190101
